FAERS Safety Report 6500508-9 (Version None)
Quarter: 2009Q4

REPORT INFORMATION
  Report Type: 
  Country: None (occurrence: None)
  Receive Date: 20091216
  Receipt Date: 20091204
  Transmission Date: 20100525
  Serious: Yes (Other)
  Sender: FDA-Public Use
  Company Number: CN-BRISTOL-MYERS SQUIBB COMPANY-14871016

PATIENT
  Age: 72 Year
  Sex: Male

DRUGS (4)
  1. MAXIPIME [Suspect]
     Indication: ANTI-INFECTIVE THERAPY
     Dosage: WITH 5% GLUCOSE INJECTION 200ML
     Route: 042
  2. DOXOFYLLINE [Concomitant]
     Indication: ASTHMA
     Dosage: WITH 5% GLUCOSE INJECTION 200ML
     Route: 042
  3. 5% GLUCOSE [Concomitant]
     Indication: ANTI-INFECTIVE THERAPY
     Dosage: INJ.
     Route: 042
  4. 5% GLUCOSE [Concomitant]
     Indication: ASTHMA
     Dosage: INJ.
     Route: 042

REACTIONS (1)
  - HAEMATURIA [None]
